FAERS Safety Report 5091748-7 (Version None)
Quarter: 2006Q3

REPORT INFORMATION
  Report Type: 
  Country: None (occurrence: None)
  Receive Date: 20060824
  Receipt Date: 20060815
  Transmission Date: 20061208
  Serious: Yes (Hospitalization)
  Sender: FDA-Public Use
  Company Number: YEHQ20051120

PATIENT
  Age: 76 Year
  Sex: Female
  Weight: 68 kg

DRUGS (3)
  1. VESICARE [Suspect]
     Dosage: 5 MG, UID/QD, ORAL
     Route: 048
     Dates: start: 20050730, end: 20050802
  2. OMEPRAZOLUM (OMEPRAZOLE) CAPSULE, 20MG [Suspect]
     Dosage: 20 MG, UID/QD, ORAL
     Route: 048
     Dates: start: 20050501, end: 20050802
  3. DICLOFENAC [Concomitant]

REACTIONS (1)
  - NEPHRITIS INTERSTITIAL [None]
